FAERS Safety Report 4989271-0 (Version None)
Quarter: 2006Q2

REPORT INFORMATION
  Report Type: 
  Country: None (occurrence: None)
  Receive Date: 20060425
  Receipt Date: 20060413
  Transmission Date: 20061013
  Serious: Yes (Death, Hospitalization)
  Sender: FDA-Public Use
  Company Number: COT_0498_2006

PATIENT
  Age: 54 Year
  Sex: Female
  Weight: 94.8018 kg

DRUGS (6)
  1. VENTAVIS [Suspect]
     Indication: PULMONARY HYPERTENSION
     Dosage: 2.5 MCG 6XD IH
     Route: 055
     Dates: start: 20050721, end: 20060412
  2. ASPIRIN [Concomitant]
  3. VICODIN [Concomitant]
  4. ZESTRIL [Concomitant]
  5. PROTONIX [Concomitant]
  6. TOPROL-XL [Concomitant]

REACTIONS (6)
  - BREAST CANCER METASTATIC [None]
  - CONDITION AGGRAVATED [None]
  - METASTASES TO LYMPH NODES [None]
  - PERICARDIAL EFFUSION [None]
  - PULMONARY HYPERTENSION [None]
  - TACHYCARDIA [None]
